FAERS Safety Report 7768472-2 (Version None)
Quarter: 2011Q3

REPORT INFORMATION
  Report Type: 
  Country: None (occurrence: None)
  Receive Date: 20110922
  Receipt Date: 20100827
  Transmission Date: 20111222
  Serious: No
  Sender: FDA-Public Use
  Company Number: US-ASTRAZENECA-2008UW11895

PATIENT
  Age: 16855 Day
  Sex: Female
  Weight: 114.8 kg

DRUGS (4)
  1. SEROQUEL [Suspect]
     Indication: SCHIZOPHRENIA
     Dosage: 100-200 MG
     Route: 048
     Dates: start: 20020601, end: 20070601
  2. ZYPREXA [Concomitant]
     Indication: SCHIZOPHRENIA
     Dosage: 5-10 MG
     Dates: start: 20020328, end: 20040521
  3. ABILIFY [Concomitant]
     Dates: start: 20061001
  4. RISPERDAL [Concomitant]
     Indication: SCHIZOPHRENIA
     Dates: start: 20010101

REACTIONS (8)
  - ASTHMA [None]
  - BLOOD CHOLESTEROL INCREASED [None]
  - TYPE 2 DIABETES MELLITUS [None]
  - ADVERSE DRUG REACTION [None]
  - DIABETIC COMPLICATION [None]
  - HYPERLIPIDAEMIA [None]
  - OBESITY [None]
  - DIABETES MELLITUS [None]
